FAERS Safety Report 10052074 (Version 1)
Quarter: 2014Q2

REPORT INFORMATION
  Report Type: Spontaneous
  Country: US (occurrence: US)
  Receive Date: 20140402
  Receipt Date: 20140402
  Transmission Date: 20141212
  Serious: No
  Sender: FDA-Public Use
  Company Number: US-009507513-1403USA011946

PATIENT
  Sex: Female

DRUGS (3)
  1. ZOCOR [Suspect]
     Indication: BLOOD CHOLESTEROL
     Dosage: 20 MG, QD
     Route: 048
     Dates: start: 199310, end: 201306
  2. ASPIRIN [Concomitant]
     Dosage: UNK
  3. VITAMINS (UNSPECIFIED) [Concomitant]
     Dosage: UNK

REACTIONS (1)
  - Pain in extremity [Recovered/Resolved]
